FAERS Safety Report 4511880-3 (Version None)
Quarter: 2004Q4

REPORT INFORMATION
  Report Type: 
  Country: None (occurrence: None)
  Receive Date: 20041129
  Receipt Date: 20041117
  Transmission Date: 20050328
  Serious: Yes (Death)
  Sender: FDA-Public Use
  Company Number: TR-JNJFOC-20041102546

PATIENT
  Age: 13 Year
  Sex: Male

DRUGS (2)
  1. RISPERDAL [Suspect]
     Dosage: DOSE UNKNOWN
  2. TEFOR [Concomitant]
     Indication: THYROID DISORDER
     Route: 049

REACTIONS (3)
  - DIARRHOEA [None]
  - INFLAMMATION [None]
  - URINARY TRACT DISORDER [None]
